FAERS Safety Report 6933845-4 (Version None)
Quarter: 2010Q3

REPORT INFORMATION
  Report Type: 
  Country: None (occurrence: None)
  Receive Date: 20100820
  Receipt Date: 20100816
  Transmission Date: 20110219
  Serious: Yes (Life-Threatening, Hospitalization)
  Sender: FDA-Public Use
  Company Number: JP-ELI_LILLY_AND_COMPANY-JP201008004374

PATIENT
  Sex: Female
  Weight: 59 kg

DRUGS (14)
  1. GEMCITABINE HCL [Suspect]
     Indication: PANCREATIC CARCINOMA
     Dosage: 1000 MG/M2, OTHER
     Route: 042
     Dates: start: 20100721, end: 20100811
  2. TOCILIZUMAB [Suspect]
     Indication: PANCREATIC CARCINOMA
     Dosage: 8 MG/KG, OTHER
     Route: 042
     Dates: start: 20100721, end: 20100811
  3. SEROTONE [Concomitant]
     Indication: PROPHYLAXIS OF NAUSEA AND VOMITING
     Dosage: 10 MG, DAILY (1/D)
     Route: 042
     Dates: start: 20100721, end: 20100811
  4. LIPITOR [Concomitant]
     Indication: HYPERLIPIDAEMIA
     Dosage: 10 MG, DAILY (1/D)
     Route: 048
     Dates: start: 20100601
  5. MAGLAX [Concomitant]
     Indication: CONSTIPATION
     Dosage: 500 MG, 4/D
     Route: 048
     Dates: start: 20100628
  6. SENNOSIDE [Concomitant]
     Indication: CONSTIPATION
     Dosage: 24 MG, DAILY (1/D)
     Route: 048
     Dates: start: 20100708
  7. TAKEPRON [Concomitant]
     Indication: GASTRIC ULCER
     Dosage: 15 MG, 2/D
     Route: 048
     Dates: start: 20100708
  8. MUCOSTA [Concomitant]
     Indication: GASTRIC ULCER
     Dosage: 100 MG, 3/D
     Route: 048
     Dates: start: 20100708
  9. BLOPRESS [Concomitant]
     Indication: HYPERTENSION
     Dosage: 2 MG, DAILY (1/D)
     Route: 048
     Dates: start: 20100708
  10. OXYCONTIN [Concomitant]
     Indication: CANCER PAIN
     Dosage: 5 MG, 2/D
     Route: 048
     Dates: start: 20100628, end: 20100811
  11. OXYCONTIN [Concomitant]
     Dosage: 10 MG, 2/D
     Route: 048
     Dates: start: 20100812
  12. OXINORM [Concomitant]
     Indication: CANCER PAIN
     Dosage: 2.5 MG, OTHER
     Route: 048
     Dates: start: 20100628
  13. OMNIPAQUE 140 [Concomitant]
     Dosage: 100 ML, OTHER
     Route: 042
     Dates: start: 20100630
  14. NOVAMIN [Concomitant]
     Indication: NAUSEA
     Dosage: 5 MG, 3/D
     Route: 048
     Dates: start: 20100722

REACTIONS (3)
  - GASTROINTESTINAL PERFORATION [None]
  - PERITONITIS [None]
  - PLEURAL EFFUSION [None]
